FAERS Safety Report 7587175-0 (Version None)
Quarter: 2011Q3

REPORT INFORMATION
  Report Type: 
  Country: None (occurrence: None)
  Receive Date: 20110701
  Receipt Date: 20110621
  Transmission Date: 20111222
  Serious: Yes (Other)
  Sender: FDA-Public Use
  Company Number: US-AMGEN-USASP2011031914

PATIENT
  Age: 26 Year
  Sex: Female

DRUGS (4)
  1. ENBREL [Suspect]
     Indication: RHEUMATOID ARTHRITIS
     Dosage: 50 MG, QWK
     Dates: start: 20080227
  2. ARAVA [Concomitant]
  3. METHOTREXATE [Concomitant]
  4. PLAQUENIL [Concomitant]
     Dates: start: 20110501

REACTIONS (5)
  - POLYCYSTIC OVARIES [None]
  - MOUTH ULCERATION [None]
  - BREAST DISCHARGE [None]
  - PRURITUS [None]
  - NIPPLE PAIN [None]
